FAERS Safety Report 7273313-6 (Version None)
Quarter: 2011Q1

REPORT INFORMATION
  Report Type: 
  Country: None (occurrence: None)
  Receive Date: 20110203
  Receipt Date: 20100727
  Transmission Date: 20110831
  Serious: No
  Sender: FDA-Public Use
  Company Number: US-ABBOTT-10P-163-0661098-00

PATIENT
  Sex: Female
  Weight: 59.928 kg

DRUGS (3)
  1. SYNTHROID [Suspect]
     Indication: HYPOTHYROIDISM
     Dosage: 50 MCG PLUS 1/2 OF 25 MCG TABLET
     Dates: start: 20090101
  2. SYNTHROID [Suspect]
     Indication: HYPOTHYROIDISM
     Dosage: 1/2 TABLET DAILY WITH 50 MCG
     Dates: start: 20090101
  3. CLARINEX [Concomitant]
     Indication: PRODUCT USED FOR UNKNOWN INDICATION

REACTIONS (4)
  - UNDERDOSE [None]
  - THYROID FUNCTION TEST ABNORMAL [None]
  - WRONG TECHNIQUE IN DRUG USAGE PROCESS [None]
  - ACCIDENTAL OVERDOSE [None]
